FAERS Safety Report 5129301-9 (Version None)
Quarter: 2006Q4

REPORT INFORMATION
  Report Type: 
  Country: None (occurrence: None)
  Receive Date: 20061011
  Receipt Date: 20060929
  Transmission Date: 20070319
  Serious: Yes (Other)
  Sender: FDA-Public Use
  Company Number: 230269

PATIENT
  Sex: Female

DRUGS (5)
  1. XOLAIR [Suspect]
     Indication: DRUG USE FOR UNKNOWN INDICATION
  2. PREDNISOLONE [Concomitant]
  3. SERETIDE (FLUTICASONE PROPIONATE, SALMETEROL XINAFOATE) [Concomitant]
  4. LOSEC (OMEPRAZOLE) [Concomitant]
  5. PROBIOTIC (GENERIC COMPONENT(S) [Concomitant]

REACTIONS (1)
  - SWOLLEN TONGUE [None]
